FAERS Safety Report 10190463 (Version 1)
Quarter: 2014Q2

REPORT INFORMATION
  Report Type: Spontaneous
  Country: US (occurrence: US)
  Receive Date: 20140522
  Receipt Date: 20140522
  Transmission Date: 20141212
  Serious: No
  Sender: FDA-Public Use
  Company Number: US-SANOFI-AVENTIS-2013SA055184

PATIENT
  Age: 56 Year
  Sex: Female

DRUGS (2)
  1. ELOXATIN [Suspect]
  2. ELOXATIN [Suspect]
     Dates: start: 20130528

REACTIONS (1)
  - Pyrexia [Not Recovered/Not Resolved]
